FAERS Safety Report 13043073 (Version 1)
Quarter: 2016Q4

REPORT INFORMATION
  Report Type: Spontaneous
  Country: DE (occurrence: DE)
  Receive Date: 20161219
  Receipt Date: 20161219
  Transmission Date: 20170207
  Serious: Yes (Death, Other)
  Sender: FDA-Public Use
  Company Number: DE-ASTRAZENECA-2016SF33877

PATIENT
  Sex: Female

DRUGS (2)
  1. VALPROAT [Suspect]
     Active Substance: VALPROATE SODIUM
     Dosage: 180 TABLETS  OF UNKNOWN STRENGTH
     Route: 048
  2. SEROQUEL [Suspect]
     Active Substance: QUETIAPINE FUMARATE
     Dosage: 80 TABLETTS OF UNKNOWN STRENGTH
     Route: 048

REACTIONS (2)
  - Toxicity to various agents [Unknown]
  - Completed suicide [Fatal]
